FAERS Safety Report 22278543 (Version 1)
Quarter: 2023Q2

REPORT INFORMATION
  Report Type: Spontaneous
  Country: CA (occurrence: CA)
  Receive Date: 20230503
  Receipt Date: 20230503
  Transmission Date: 20230721
  Serious: Yes (Other)
  Sender: FDA-Public Use
  Company Number: CA-002147023-NVSC2023CA097363

PATIENT
  Sex: Male
  Weight: 102 kg

DRUGS (3)
  1. OMEPRAZOLE [Suspect]
     Active Substance: OMEPRAZOLE
     Indication: Gastrooesophageal reflux disease
     Dosage: 20 MG, QD
     Route: 065
  2. CEFIXIME [Suspect]
     Active Substance: CEFIXIME
     Indication: Back pain
     Dosage: 10 MG, BID
     Route: 065
  3. GABAPENTIN [Suspect]
     Active Substance: GABAPENTIN
     Indication: Neuralgia
     Dosage: 300 MG, TID
     Route: 065

REACTIONS (2)
  - COVID-19 [Recovered/Resolved]
  - Tracheobronchitis bacterial [Recovered/Resolved]
